FAERS Safety Report 6372177-2 (Version None)
Quarter: 2009Q3

REPORT INFORMATION
  Report Type: 
  Country: None (occurrence: None)
  Receive Date: 20090917
  Receipt Date: 20090904
  Transmission Date: 20100115
  Serious: Yes (Life-Threatening)
  Sender: FDA-Public Use
  Company Number: ADR17632009

PATIENT
  Age: 77 Year
  Sex: Female

DRUGS (8)
  1. CITALOPRAM HYDROBROMIDE [Suspect]
     Indication: DEPRESSION
     Dosage: 40MG (1/1 DAYS) ORAL
     Route: 048
  2. MIRTAZAPINE [Concomitant]
  3. OLANZAPINE [Concomitant]
  4. ALENDRONIC ACID [Concomitant]
  5. BENDROFLUMETHIAZIDE [Concomitant]
  6. NULYTELY [Concomitant]
  7. SOFRADEX [Concomitant]
  8. ZOPICLONE [Concomitant]

REACTIONS (8)
  - BRADYCARDIA [None]
  - BUNDLE BRANCH BLOCK RIGHT [None]
  - CARDIAC ARREST [None]
  - ELECTROCARDIOGRAM QT PROLONGED [None]
  - ELECTROMECHANICAL DISSOCIATION [None]
  - FALL [None]
  - SYNCOPE [None]
  - VENTRICULAR TACHYCARDIA [None]
